FAERS Safety Report 12476728 (Version 2)
Quarter: 2016Q2

REPORT INFORMATION
  Report Type: Spontaneous
  Country: GB (occurrence: GB)
  Receive Date: 20160617
  Receipt Date: 20160622
  Transmission Date: 20160815
  Serious: Yes (Other)
  Sender: FDA-Public Use
  Company Number: GB-ASTELLAS-2016US023267

PATIENT
  Sex: Female

DRUGS (1)
  1. TARCEVA [Suspect]
     Active Substance: ERLOTINIB HYDROCHLORIDE
     Indication: NON-SMALL CELL LUNG CANCER
     Dosage: UNK, UNKNOWN FREQ. DATE OF MOST RECENT DOSE: 13/MAY/2016.
     Route: 065

REACTIONS (7)
  - Suicidal ideation [Unknown]
  - Hyponatraemia [Unknown]
  - Asthenia [Unknown]
  - Malaise [Unknown]
  - Back pain [Not Recovered/Not Resolved]
  - Fatigue [Unknown]
  - Nausea [Unknown]
